FAERS Safety Report 5743938-5 (Version None)
Quarter: 2008Q2

REPORT INFORMATION
  Report Type: 
  Country: None (occurrence: None)
  Receive Date: 20080520
  Receipt Date: 20080508
  Transmission Date: 20081010
  Serious: No
  Sender: FDA-Public Use
  Company Number: GB-PFIZER INC-2006053493

PATIENT
  Age: 12 Month
  Sex: Female

DRUGS (7)
  1. PHENYTOIN [Suspect]
     Indication: CONVULSION
     Dosage: TEXT:UNKNOWN-FREQ:UNKNOWN
     Route: 065
  2. QUININE [Suspect]
     Indication: PLASMODIUM FALCIPARUM INFECTION
     Dosage: TEXT:UNKNOWN-FREQ:UNKNOWN
     Route: 042
  3. VALPROATE SODIUM [Concomitant]
     Route: 065
  4. TOPIRAMATE [Concomitant]
     Route: 065
  5. PARALDEHYDE [Concomitant]
     Route: 065
  6. PYRIMETHAMINE TAB [Concomitant]
     Route: 065
  7. SULFADOXINE [Concomitant]
     Route: 065

REACTIONS (1)
  - NO ADVERSE EVENT [None]
